FAERS Safety Report 12492261 (Version 2)
Quarter: 2016Q3

REPORT INFORMATION
  Report Type: Spontaneous
  Country: FR (occurrence: FR)
  Receive Date: 20160623
  Receipt Date: 20160713
  Transmission Date: 20161109
  Serious: Yes (Hospitalization, Disabling)
  Sender: FDA-Public Use
  Company Number: FR-PFIZER INC-2016304584

PATIENT
  Age: 65 Year
  Sex: Male

DRUGS (1)
  1. TAHOR [Suspect]
     Active Substance: ATORVASTATIN CALCIUM
     Indication: ARTERIOSCLEROSIS
     Dosage: 10 MG, 1X/DAY
     Route: 048
     Dates: start: 20151222, end: 20160602

REACTIONS (2)
  - Tendon disorder [Recovered/Resolved with Sequelae]
  - Tendon rupture [Recovered/Resolved with Sequelae]

NARRATIVE: CASE EVENT DATE: 2016
